FAERS Safety Report 12285378 (Version 1)
Quarter: 2016Q2

REPORT INFORMATION
  Report Type: Spontaneous
  Country: US (occurrence: None)
  Receive Date: 20160419
  Receipt Date: 20160419
  Transmission Date: 20160815
  Serious: Yes (Disabling)
  Sender: FDA-Public Use
  Company Number: None

PATIENT
  Age: 51 Year
  Sex: Female
  Weight: 77.11 kg

DRUGS (1)
  1. ARIPIPRAZOLE 5 MG TABLET, 5 MG APOTEX CORP [Suspect]
     Active Substance: ARIPIPRAZOLE
     Indication: DEPRESSION
     Dosage: 90 TABLET(S) ONCE A DAY TAKEN BY MOUTH
     Route: 048

REACTIONS (3)
  - Product substitution issue [None]
  - Weight increased [None]
  - Depression [None]
